FAERS Safety Report 8757770 (Version 4)
Quarter: 2012Q4

REPORT INFORMATION
  Report Type: 
  Country: US (occurrence: US)
  Receive Date: 20120828
  Receipt Date: 20121108
  Transmission Date: 20130627
  Serious: Yes (Other)
  Sender: FDA-Public Use
  Company Number: US-ALEXION-A201201561

PATIENT
  Age: 40 None
  Sex: Female

DRUGS (2)
  1. SOLIRIS 300MG [Suspect]
     Indication: PAROXYSMAL NOCTURNAL HAEMOGLOBINURIA
     Dosage: UNK
     Route: 042
  2. PROCRIT [Suspect]
     Dosage: UNK

REACTIONS (18)
  - Aplastic anaemia [Unknown]
  - Transfusion [Unknown]
  - Malaise [Unknown]
  - Pain [Unknown]
  - Feeling abnormal [Not Recovered/Not Resolved]
  - Ovarian cyst [Unknown]
  - Dyspnoea [Not Recovered/Not Resolved]
  - Muscular weakness [Not Recovered/Not Resolved]
  - Burning sensation [Not Recovered/Not Resolved]
  - Oedema peripheral [Unknown]
  - Pain in extremity [Unknown]
  - Abdominal pain [Recovered/Resolved]
  - Nausea [Not Recovered/Not Resolved]
  - Dizziness [Unknown]
  - Bone pain [Unknown]
  - Back pain [Unknown]
  - Haemoglobin decreased [Unknown]
  - Tinnitus [Not Recovered/Not Resolved]
